FAERS Safety Report 11358908 (Version 1)
Quarter: 2015Q3

REPORT INFORMATION
  Report Type: Spontaneous
  Country: US (occurrence: None)
  Receive Date: 20150709
  Receipt Date: 20150709
  Transmission Date: 20151125
  Serious: Yes (Other)
  Sender: FDA-Public Use
  Company Number: PHEH2015US004306

PATIENT
  Age: 60 Year
  Sex: Female

DRUGS (21)
  1. SYNTHROID [Concomitant]
     Active Substance: LEVOTHYROXINE SODIUM
  2. DIAZEPAM. [Concomitant]
     Active Substance: DIAZEPAM
  3. METRONIDAZOLE. [Concomitant]
     Active Substance: METRONIDAZOLE
  4. VALACYCLOVIR (VALACICLOVIR HYDROCHLORIDE) [Concomitant]
  5. ECOTRIN [Concomitant]
     Active Substance: ASPIRIN
  6. TUMS [Suspect]
     Active Substance: CALCIUM CARBONATE
     Indication: BLOOD CALCIUM DECREASED
     Dosage: BEFORE OR AFTER HER GLEEVEC
  7. INDERAL [Concomitant]
     Active Substance: PROPRANOLOL HYDROCHLORIDE
  8. VIT D (ERGOCALCIFEROL) [Concomitant]
     Active Substance: ERGOCALCIFEROL
  9. CEPHALEXIN (CEFALEXIN) [Concomitant]
     Active Substance: CEPHALEXIN
  10. PROTONIX [Concomitant]
     Active Substance: PANTOPRAZOLE SODIUM
  11. GLEEVEC [Suspect]
     Active Substance: IMATINIB MESYLATE
     Indication: GASTROINTESTINAL STROMAL TUMOUR
     Route: 048
  12. ZOVIRAX (ACICLOVIR SODIUM) [Concomitant]
  13. FUROSEMIDE. [Concomitant]
     Active Substance: FUROSEMIDE
  14. CALCIROL (COLECALCIFEROL) [Concomitant]
  15. PROPRANOLOL [Concomitant]
     Active Substance: PROPRANOLOL\PROPRANOLOL HYDROCHLORIDE
  16. DIPHENOXYLATE/ATROPINE (ATROPINE SULFATE, DIPHENOXYLATE HYDROCHLORIDE) [Concomitant]
  17. PREMARIN [Concomitant]
     Active Substance: ESTROGENS, CONJUGATED
  18. VITAMIN D (ERGOCALCIFEROL) [Concomitant]
     Active Substance: ERGOCALCIFEROL
  19. VICODIN [Concomitant]
     Active Substance: ACETAMINOPHEN\HYDROCODONE BITARTRATE
  20. OPIUM TINCTURE (PAPAVER SOMNIFERUM TINCTURE) [Concomitant]
  21. OPIUM ALKALOIDS TOTAL [Concomitant]

REACTIONS (7)
  - Cardiac disorder [None]
  - Myocardial infarction [None]
  - Blood calcium decreased [None]
  - Malaise [None]
  - Toxicity to various agents [None]
  - Drug withdrawal syndrome [None]
  - Tinnitus [None]
